FAERS Safety Report 9279497 (Version 1)
Quarter: 2013Q2

REPORT INFORMATION
  Report Type: Spontaneous
  Country: AU (occurrence: AU)
  Receive Date: 20130508
  Receipt Date: 20130508
  Transmission Date: 20140414
  Serious: Yes (Disabling, Other)
  Sender: FDA-Public Use
  Company Number: AU-ALLERGAN-0910355US

PATIENT
  Age: 36 Year
  Sex: Female
  Weight: 46 kg

DRUGS (6)
  1. BOTOX? [Suspect]
     Indication: SKIN WRINKLING
     Dosage: 15 UNITS, SINGLE
     Route: 030
     Dates: start: 20090710, end: 20090710
  2. BOTOX? [Suspect]
     Indication: SKIN WRINKLING
  3. BOTOX? [Suspect]
     Indication: SKIN WRINKLING
  4. DOXYCYCLINE [Concomitant]
     Indication: ACNE
  5. VALIUM [Concomitant]
     Indication: ANXIETY
  6. VITAMINS [Concomitant]
     Indication: PRODUCT USED FOR UNKNOWN INDICATION

REACTIONS (28)
  - Confusional state [Unknown]
  - Drug effect increased [Unknown]
  - Drug effect prolonged [Unknown]
  - Drug interaction [Unknown]
  - Disorientation [Unknown]
  - Eyelid oedema [Not Recovered/Not Resolved]
  - Panic attack [Not Recovered/Not Resolved]
  - Crying [Not Recovered/Not Resolved]
  - Periorbital fat herniation [Unknown]
  - Dry throat [Unknown]
  - Musculoskeletal stiffness [Unknown]
  - Musculoskeletal stiffness [Unknown]
  - Insomnia [Unknown]
  - Night sweats [Unknown]
  - Chills [Unknown]
  - Dizziness [Unknown]
  - Photosensitivity reaction [Unknown]
  - Feeling abnormal [Unknown]
  - Tremor [Unknown]
  - Anxiety [Unknown]
  - Panic attack [Unknown]
  - Facial paresis [Not Recovered/Not Resolved]
  - Influenza like illness [Unknown]
  - VIIth nerve paralysis [Unknown]
  - VIIth nerve paralysis [Not Recovered/Not Resolved]
  - Nausea [Unknown]
  - Skin tightness [Not Recovered/Not Resolved]
  - Therapeutic response decreased [Unknown]
